FAERS Safety Report 15909677 (Version 1)
Quarter: 2019Q1

REPORT INFORMATION
  Report Type: Spontaneous
  Country: US (occurrence: US)
  Receive Date: 20190204
  Receipt Date: 20190204
  Transmission Date: 20190417
  Serious: No
  Sender: FDA-Public Use
  Company Number: US-ABBVIE-18K-163-2295392-00

PATIENT
  Sex: Female

DRUGS (2)
  1. HUMIRA [Suspect]
     Active Substance: ADALIMUMAB
     Indication: HIDRADENITIS
     Route: 058
     Dates: start: 201410
  2. METHOTREXATE. [Suspect]
     Active Substance: METHOTREXATE
     Indication: HIDRADENITIS
     Route: 065
     Dates: start: 201604

REACTIONS (5)
  - Asthenia [Unknown]
  - Pain [Unknown]
  - Cellulitis [Unknown]
  - Fatigue [Unknown]
  - Dehydration [Unknown]
